FAERS Safety Report 5647548-X (Version None)
Quarter: 2008Q1

REPORT INFORMATION
  Report Type: 
  Country: None (occurrence: None)
  Receive Date: 20080131
  Receipt Date: 20071221
  Transmission Date: 20080703
  Serious: No
  Sender: FDA-Public Use
  Company Number: 163-20785-07101251

PATIENT
  Age: 60 Year
  Sex: Male

DRUGS (3)
  1. THALOMID [Suspect]
     Indication: MULTIPLE MYELOMA
     Dosage: 200 MG, 2 IN 1 D, ORAL ; 100MG-150MG-200MG, DAILY, ORAL
     Route: 048
     Dates: start: 20040421, end: 20051101
  2. THALOMID [Suspect]
     Indication: MULTIPLE MYELOMA
     Dosage: 200 MG, 2 IN 1 D, ORAL ; 100MG-150MG-200MG, DAILY, ORAL
     Route: 048
     Dates: start: 20051109, end: 20070101
  3. REVLIMID [Suspect]

REACTIONS (2)
  - SKIN IRRITATION [None]
  - SOMNOLENCE [None]
